FAERS Safety Report 5729774-4 (Version None)
Quarter: 2008Q2

REPORT INFORMATION
  Report Type: 
  Country: None (occurrence: None)
  Receive Date: 20080501
  Receipt Date: 20080428
  Transmission Date: 20081010
  Serious: Yes (Death, Life-Threatening)
  Sender: FDA-Public Use
  Company Number: 2007JP002765

PATIENT
  Age: 31 Year
  Sex: Female
  Weight: 63.1 kg

DRUGS (13)
  1. TACROLIMUS [Suspect]
     Indication: LUPUS NEPHRITIS
     Dosage: 1.5 MG, UNKNOWN/D, ORAL
     Route: 048
     Dates: start: 20070424, end: 20070608
  2. PREDNISOLONE [Suspect]
     Indication: LUPUS NEPHRITIS
     Dosage: SEE IMAGE
     Route: 048
     Dates: end: 20070610
  3. PREDNISOLONE [Suspect]
     Indication: LUPUS NEPHRITIS
     Dosage: SEE IMAGE
     Route: 048
     Dates: start: 20070613, end: 20070617
  4. PREDNISOLONE [Suspect]
     Indication: LUPUS NEPHRITIS
     Dosage: SEE IMAGE
     Route: 048
     Dates: start: 20070621, end: 20070703
  5. METHYLPREDNISOLONE [Suspect]
     Indication: LUPUS NEPHRITIS
     Dosage: 1000 MG
     Dates: start: 20070611, end: 20070613
  6. METHYLPREDNISOLONE [Suspect]
     Indication: LUPUS NEPHRITIS
     Dosage: 1000 MG
     Dates: start: 20070618, end: 20070620
  7. BUFFERIN [Concomitant]
  8. ALLOPURINOL [Concomitant]
  9. ONEALFA (ALFACALCIDOL) [Concomitant]
  10. WARFARIN SODIUM [Concomitant]
  11. PERSANTIN [Concomitant]
  12. SIMVASTATIN [Concomitant]
  13. LANSOPRAZOLE [Concomitant]

REACTIONS (11)
  - AORTIC VALVE INCOMPETENCE [None]
  - CARDIAC ARREST [None]
  - CARDIAC FAILURE [None]
  - DIALYSIS [None]
  - ENDOCARDITIS STAPHYLOCOCCAL [None]
  - GAZE PALSY [None]
  - HAEMORRHAGE [None]
  - HYPERTHERMIA [None]
  - NO THERAPEUTIC RESPONSE [None]
  - RENAL FAILURE ACUTE [None]
  - THROMBOCYTOPENIA [None]
